FAERS Safety Report 24613114 (Version 1)
Quarter: 2024Q4

REPORT INFORMATION
  Report Type: Spontaneous
  Country: US (occurrence: US)
  Receive Date: 20241113
  Receipt Date: 20241113
  Transmission Date: 20250115
  Serious: No
  Sender: ROCHE
  Company Number: US-ROCHE-10000125006

PATIENT

DRUGS (18)
  1. RITUXAN [Suspect]
     Active Substance: RITUXIMAB
     Indication: Burkitt^s lymphoma
     Route: 065
  2. RITUXAN [Suspect]
     Active Substance: RITUXIMAB
     Indication: Drug intolerance
  3. RITUXAN [Suspect]
     Active Substance: RITUXIMAB
     Indication: Diffuse large B-cell lymphoma
  4. RITUXAN [Suspect]
     Active Substance: RITUXIMAB
     Indication: Chronic lymphocytic leukaemia refractory
  5. RITUXAN [Suspect]
     Active Substance: RITUXIMAB
     Indication: Microscopic polyangiitis
  6. RITUXAN [Suspect]
     Active Substance: RITUXIMAB
     Indication: Pemphigus
  7. RITUXAN [Suspect]
     Active Substance: RITUXIMAB
     Indication: Granulomatosis with polyangiitis
  8. RITUXAN [Suspect]
     Active Substance: RITUXIMAB
     Indication: Joint injury
  9. RITUXAN [Suspect]
     Active Substance: RITUXIMAB
     Indication: Rheumatoid arthritis
  10. RITUXAN [Suspect]
     Active Substance: RITUXIMAB
     Indication: Granulomatosis with polyangiitis
  11. RITUXAN [Suspect]
     Active Substance: RITUXIMAB
     Indication: B-cell lymphoma stage III
  12. RITUXAN [Suspect]
     Active Substance: RITUXIMAB
     Indication: B-cell lymphoma stage IV
  13. RITUXAN [Suspect]
     Active Substance: RITUXIMAB
     Indication: Follicular lymphoma
  14. RITUXAN [Suspect]
     Active Substance: RITUXIMAB
     Indication: Follicular lymphoma
  15. BENADRYL [Concomitant]
     Active Substance: DIPHENHYDRAMINE HYDROCHLORIDE
  16. PREDNISONE [Concomitant]
     Active Substance: PREDNISONE
  17. CLARITIN [Concomitant]
     Active Substance: LORATADINE
  18. ZYRTEC [Concomitant]
     Active Substance: CETIRIZINE HYDROCHLORIDE

REACTIONS (17)
  - Cough [Unknown]
  - Rhinorrhoea [Unknown]
  - Back pain [Unknown]
  - Diarrhoea [Unknown]
  - Swelling face [Unknown]
  - Vision blurred [Unknown]
  - Headache [Unknown]
  - Chest pain [Unknown]
  - Blood pressure measurement [Unknown]
  - Dizziness [Unknown]
  - Fatigue [Unknown]
  - Wheezing [Unknown]
  - Renal pain [Unknown]
  - Palpitations [Unknown]
  - Contusion [Unknown]
  - Nasal congestion [Unknown]
  - Bladder spasm [Unknown]
